FAERS Safety Report 5484118-0 (Version None)
Quarter: 2007Q4

REPORT INFORMATION
  Report Type: 
  Country: None (occurrence: None)
  Receive Date: 20071012
  Receipt Date: 20071004
  Transmission Date: 20080405
  Serious: Yes (Other)
  Sender: FDA-Public Use
  Company Number: GB-SHR-GB-2007-037294

PATIENT
  Age: 52 Year
  Sex: Female
  Weight: 53.968 kg

DRUGS (9)
  1. FLUDARABINE PHOSPHATE [Suspect]
     Route: 042
  2. CYCLIZINE [Suspect]
     Route: 042
  3. CYCLOPHOSPHAMIDE [Suspect]
     Indication: LYMPHOMA
     Route: 042
  4. DOXORUBICIN HCL [Suspect]
     Indication: LYMPHOMA
  5. GRANISETRON  HCL [Suspect]
     Indication: LYMPHOMA
     Dosage: 3MG/DAY
     Route: 042
     Dates: start: 20070828
  6. PREDNISONE [Suspect]
     Indication: LYMPHOMA
     Route: 042
  7. TEGRETOL [Suspect]
     Indication: EPILEPSY
     Dosage: 400MG/3XDAY
     Route: 048
  8. VINCRISTINE [Suspect]
     Indication: LYMPHOMA
     Route: 042
  9. ZOFRAN [Suspect]
     Dosage: 8MG 3XDAY
     Route: 048

REACTIONS (2)
  - DRUG INTERACTION [None]
  - NAUSEA [None]
